FAERS Safety Report 13570563 (Version 2)
Quarter: 2017Q3

REPORT INFORMATION
  Report Type: Report from Study
  Country: None (occurrence: US)
  Receive Date: 20170522
  Receipt Date: 20170712
  Transmission Date: 20171127
  Serious: Yes (Hospitalization)
  Sender: FDA-Public Use
  Company Number: US-ABBVIE-17K-163-1981932-00

PATIENT
  Age: 67 Year
  Sex: Female

DRUGS (3)
  1. PROPANOLOL [Concomitant]
     Active Substance: PROPRANOLOL HYDROCHLORIDE
     Indication: MIGRAINE
     Route: 048
  2. NEURONTIN [Suspect]
     Active Substance: GABAPENTIN
     Indication: PRODUCT USED FOR UNKNOWN INDICATION
     Route: 048
  3. HUMIRA [Suspect]
     Active Substance: ADALIMUMAB
     Indication: RHEUMATOID ARTHRITIS
     Route: 058

REACTIONS (7)
  - Fall [Recovering/Resolving]
  - Hypotension [Unknown]
  - Vertigo [Unknown]
  - Drug hypersensitivity [Unknown]
  - Loss of consciousness [Unknown]
  - Head injury [Unknown]
  - Headache [Unknown]

NARRATIVE: CASE EVENT DATE: 201705
